FAERS Safety Report 13722382 (Version 1)
Quarter: 2017Q3

REPORT INFORMATION
  Report Type: Spontaneous
  Country: JP (occurrence: JP)
  Receive Date: 20170706
  Receipt Date: 20170706
  Transmission Date: 20171127
  Serious: Yes (Hospitalization, Other)
  Sender: FDA-Public Use
  Company Number: JP-PFIZER INC-2016523843

PATIENT
  Age: 79 Year
  Sex: Male

DRUGS (10)
  1. RHEUMATREX [Suspect]
     Active Substance: METHOTREXATE SODIUM
     Indication: RHEUMATOID ARTHRITIS
     Dosage: 4 MG, WEEKLY
     Route: 048
     Dates: start: 20081021, end: 20090414
  2. RHEUMATREX [Suspect]
     Active Substance: METHOTREXATE SODIUM
     Dosage: 10 MG, WEEKLY
     Route: 048
     Dates: start: 20130327, end: 20161103
  3. CLEANAL [Concomitant]
     Active Substance: FUDOSTEINE
     Dosage: 400 MG, 3X/DAY
     Route: 048
     Dates: start: 20090529, end: 20161103
  4. ACETAMINOPHEN/CAFFEINE/MAGNESIUM SALICYLATE/PHENYLTOLOXAMINE CITRATE [Concomitant]
     Dosage: UNK, AS NEEDED
     Route: 048
     Dates: start: 20100507, end: 20161103
  5. ERYTHROCIN #2 [Concomitant]
     Dosage: 200 MG, 3X/DAY
     Route: 048
     Dates: start: 20150306, end: 20161103
  6. LOXONIN [Concomitant]
     Active Substance: LOXOPROFEN SODIUM
     Indication: RHEUMATOID ARTHRITIS
     Dosage: 60 MG, 3X/DAY
     Route: 048
     Dates: start: 20081021, end: 20161103
  7. RHEUMATREX [Suspect]
     Active Substance: METHOTREXATE SODIUM
     Dosage: 6 MG, WEEKLY
     Route: 048
     Dates: start: 20090415, end: 20130326
  8. CYTOTEC [Concomitant]
     Active Substance: MISOPROSTOL
     Indication: RHEUMATOID ARTHRITIS
     Dosage: 200 UG, 3X/DAY
     Route: 048
     Dates: start: 20081021, end: 20161103
  9. FOLIAMIN [Concomitant]
     Active Substance: FOLIC ACID
     Indication: RHEUMATOID ARTHRITIS
     Dosage: 5 MG, WEEKLY
     Route: 048
     Dates: start: 20130327, end: 20161103
  10. ADOFEED [Concomitant]
     Active Substance: FLURBIPROFEN
     Dosage: UNK
     Route: 062
     Dates: start: 20140307, end: 20161103

REACTIONS (8)
  - Condition aggravated [Recovered/Resolved]
  - Disseminated intravascular coagulation [Unknown]
  - Aortic rupture [Unknown]
  - Body tinea [Unknown]
  - Interstitial lung disease [Recovered/Resolved]
  - Pneumonia [Unknown]
  - Pneumonia klebsiella [Unknown]
  - Hyperkalaemia [Unknown]

NARRATIVE: CASE EVENT DATE: 20161101
